FAERS Safety Report 10275217 (Version 2)
Quarter: 2014Q3

REPORT INFORMATION
  Report Type: Spontaneous
  Country: US (occurrence: US)
  Receive Date: 20140703
  Receipt Date: 20140707
  Transmission Date: 20150326
  Serious: No
  Sender: FDA-Public Use
  Company Number: US-BIOGENIDEC-2014BI064295

PATIENT
  Age: 58 Year
  Sex: Female

DRUGS (5)
  1. SERAQUEL [Concomitant]
  2. CITALOPRAM [Concomitant]
     Active Substance: CITALOPRAM HYDROBROMIDE
  3. AMBIEN [Concomitant]
     Active Substance: ZOLPIDEM TARTRATE
  4. AVONEX [Suspect]
     Active Substance: INTERFERON BETA-1A
     Indication: MULTIPLE SCLEROSIS
     Route: 030
     Dates: start: 1998
  5. AVONEX [Suspect]
     Active Substance: INTERFERON BETA-1A
     Indication: MULTIPLE SCLEROSIS
     Route: 030
     Dates: start: 20020606

REACTIONS (4)
  - Anxiety [Not Recovered/Not Resolved]
  - Hypothyroidism [Unknown]
  - Depression [Recovered/Resolved]
  - Bipolar disorder [Unknown]

NARRATIVE: CASE EVENT DATE: 1998
